FAERS Safety Report 14488102 (Version 2)
Quarter: 2018Q3

REPORT INFORMATION
  Report Type: Report from Study
  Country: NL (occurrence: NL)
  Receive Date: 20180205
  Receipt Date: 20180809
  Transmission Date: 20181010
  Serious: Yes (Hospitalization, Other)
  Sender: FDA-Public Use
  Company Number: NL-PFIZER INC-2018047108

PATIENT
  Age: 76 Year
  Sex: Female
  Weight: 50 kg

DRUGS (7)
  1. ROACTEMRA [Suspect]
     Active Substance: TOCILIZUMAB
     Dosage: 430 MG, MONTHLY
     Route: 042
     Dates: start: 20110916
  2. SALAZOPYRINE [Suspect]
     Active Substance: SULFASALAZINE
     Dosage: 200 MG, 1X/DAY
     Route: 048
  3. ROACTEMRA [Suspect]
     Active Substance: TOCILIZUMAB
     Dosage: 430 MG, MONTHLY
     Route: 042
     Dates: start: 20111110
  4. ROACTEMRA [Suspect]
     Active Substance: TOCILIZUMAB
     Dosage: 430 MG, MONTHLY
     Route: 042
     Dates: start: 20111208
  5. ROACTEMRA [Suspect]
     Active Substance: TOCILIZUMAB
     Dosage: 430 MG, MONTHLY
     Route: 042
     Dates: start: 20111013
  6. OMEPRAZOL [Concomitant]
     Active Substance: OMEPRAZOLE
     Dosage: 20 MG, 1X/DAY
     Route: 048
  7. ROACTEMRA [Suspect]
     Active Substance: TOCILIZUMAB
     Indication: RHEUMATOID ARTHRITIS
     Dosage: 430 MG, MONTHLY
     Route: 042
     Dates: start: 20090618

REACTIONS (3)
  - Abdominal abscess [Recovered/Resolved]
  - Diverticular perforation [Recovered/Resolved]
  - Diverticulitis [Recovered/Resolved]

NARRATIVE: CASE EVENT DATE: 20111218
